FAERS Safety Report 8667845 (Version 3)
Quarter: 2013Q3

REPORT INFORMATION
  Report Type: Spontaneous
  Country: DK (occurrence: DK)
  Receive Date: 20120717
  Receipt Date: 20130801
  Transmission Date: 20140515
  Serious: Yes (Hospitalization, Other)
  Sender: FDA-Public Use
  Company Number: DK-JNJFOC-20120706750

PATIENT
  Age: 74 Year
  Sex: Male

DRUGS (4)
  1. TRAMADOL HYDROCHLORIDE [Suspect]
     Indication: BACK PAIN
     Dosage: FOR 4 DAYS
     Route: 065
  2. IBUPROFEN [Interacting]
     Route: 065
  3. IBUPROFEN [Interacting]
     Indication: BACK PAIN
     Route: 065
  4. MAREVAN [Interacting]
     Indication: ANTICOAGULANT THERAPY
     Route: 065

REACTIONS (2)
  - International normalised ratio increased [Recovered/Resolved]
  - Drug interaction [Recovered/Resolved]
